FAERS Safety Report 25581824 (Version 1)
Quarter: 2025Q3

REPORT INFORMATION
  Report Type: Report from Study
  Country: CA (occurrence: CA)
  Receive Date: 20250719
  Receipt Date: 20250719
  Transmission Date: 20251020
  Serious: Yes (Other)
  Sender: CELLTRION
  Company Number: CA-CELLTRION INC.-2025CA023422

PATIENT

DRUGS (2)
  1. OMALIZUMAB [Suspect]
     Active Substance: OMALIZUMAB
     Indication: Chronic spontaneous urticaria
     Route: 058
  2. OMALIZUMAB [Suspect]
     Active Substance: OMALIZUMAB
     Route: 058

REACTIONS (13)
  - Malaise [Unknown]
  - Nervousness [Unknown]
  - Throat tightness [Unknown]
  - Angioedema [Unknown]
  - Dyspnoea [Unknown]
  - Fatigue [Unknown]
  - Influenza like illness [Unknown]
  - Myalgia [Unknown]
  - Nasal congestion [Unknown]
  - Palpitations [Unknown]
  - Headache [Unknown]
  - Drug ineffective [Unknown]
  - Underdose [Unknown]
